FAERS Safety Report 23076325 (Version 1)
Quarter: 2023Q4

REPORT INFORMATION
  Report Type: Report from Study
  Country: US (occurrence: US)
  Receive Date: 20231017
  Receipt Date: 20231017
  Transmission Date: 20240110
  Serious: Yes (Hospitalization)
  Sender: FDA-Public Use
  Company Number: US-BAYER-2023A129014

PATIENT
  Age: 59 Year
  Sex: Male
  Weight: 77.098 kg

DRUGS (7)
  1. ADEMPAS [Suspect]
     Active Substance: RIOCIGUAT
     Indication: Pulmonary arterial hypertension
     Dosage: UNK
     Dates: start: 20230804
  2. ADEMPAS [Suspect]
     Active Substance: RIOCIGUAT
     Indication: Pulmonary arterial hypertension
     Dosage: 1.5 MG, TID
     Route: 048
  3. ADEMPAS [Suspect]
     Active Substance: RIOCIGUAT
     Indication: Pulmonary arterial hypertension
     Dosage: 2 MG, TID
     Route: 048
  4. VELETRI [Concomitant]
     Active Substance: EPOPROSTENOL
  5. AMLODIPINE [Concomitant]
     Active Substance: AMLODIPINE BESYLATE
  6. TREPROSTINIL [Concomitant]
     Active Substance: TREPROSTINIL
  7. OPSUMIT [Concomitant]
     Active Substance: MACITENTAN

REACTIONS (3)
  - Abdominal pain upper [None]
  - Urticaria [None]
  - Swelling face [Not Recovered/Not Resolved]
